FAERS Safety Report 17572812 (Version 1)
Quarter: 2020Q1

REPORT INFORMATION
  Report Type: Spontaneous
  Country: US (occurrence: US)
  Receive Date: 20200323
  Receipt Date: 20200323
  Transmission Date: 20200409
  Serious: No
  Sender: FDA-Public Use
  Company Number: US-CARDINAL HEALTH 414-CAHLYMPH-AE-19-11

PATIENT
  Age: 43 Year
  Sex: Female
  Weight: 114.3 kg

DRUGS (3)
  1. CHLORAPREP [Concomitant]
     Active Substance: CHLORHEXIDINE GLUCONATE\ISOPROPYL ALCOHOL
  2. BETADINE [Concomitant]
     Active Substance: POVIDONE-IODINE
     Route: 061
     Dates: start: 20190404, end: 20190404
  3. LYMPHOSEEK [Suspect]
     Active Substance: TECHNETIUM TC-99M TILMANOCEPT
     Indication: LYMPHATIC MAPPING
     Route: 023
     Dates: start: 20190404, end: 20190404

REACTIONS (2)
  - Injection site rash [Recovering/Resolving]
  - Lymphangitis [Recovering/Resolving]

NARRATIVE: CASE EVENT DATE: 20190406
